FAERS Safety Report 13545787 (Version 1)
Quarter: 2017Q2

REPORT INFORMATION
  Report Type: Spontaneous
  Country: US (occurrence: US)
  Receive Date: 20170515
  Receipt Date: 20170515
  Transmission Date: 20170830
  Serious: No
  Sender: FDA-Public Use
  Company Number: US-WARNER CHILCOTT-2016-001641

PATIENT
  Age: 80 Year
  Sex: Female

DRUGS (1)
  1. RISEDRONATE [Suspect]
     Active Substance: RISEDRONATE SODIUM
     Dosage: UNK, UNKNOWN

REACTIONS (1)
  - Muscle spasms [Unknown]
